FAERS Safety Report 7403271-2 (Version None)
Quarter: 2011Q2

REPORT INFORMATION
  Report Type: 
  Country: None (occurrence: None)
  Receive Date: 20110408
  Receipt Date: 20110405
  Transmission Date: 20111010
  Serious: Yes (Other)
  Sender: FDA-Public Use
  Company Number: JP-ABBOTT-11P-087-0713235-00

PATIENT
  Age: 79 Year
  Sex: Female

DRUGS (6)
  1. KANAMYCIN SULFATE [Suspect]
     Indication: MYCOBACTERIAL INFECTION
     Dates: start: 20070601
  2. CLARITHROMYCIN [Suspect]
     Indication: MYCOBACTERIAL INFECTION
     Dates: start: 20070601
  3. ISONIAZID [Concomitant]
     Indication: MYCOBACTERIAL INFECTION
  4. ETHAMBUTOL HYDROCHLORIDE [Concomitant]
     Indication: MYCOBACTERIAL INFECTION
     Dates: start: 20070601
  5. RIFAMPICIN [Concomitant]
     Indication: MYCOBACTERIAL INFECTION
     Dates: start: 20070601
  6. ERYTHROMYCIN [Concomitant]
     Indication: MYCOBACTERIAL INFECTION

REACTIONS (1)
  - INTERSTITIAL LUNG DISEASE [None]
